FAERS Safety Report 5083525-8 (Version None)
Quarter: 2006Q3

REPORT INFORMATION
  Report Type: 
  Country: None (occurrence: None)
  Receive Date: 20060818
  Receipt Date: 20060731
  Transmission Date: 20061208
  Serious: Yes (Hospitalization, Other)
  Sender: FDA-Public Use
  Company Number: AT-ALLERGAN-0603177US

PATIENT
  Sex: Male

DRUGS (1)
  1. BOTOX [Suspect]
     Indication: PAIN
     Dosage: 100 UNITS, SINGLE
     Dates: start: 20060724, end: 20060724

REACTIONS (3)
  - DYSPHAGIA [None]
  - DYSPHONIA [None]
  - SPEECH DISORDER [None]
